FAERS Safety Report 4845349-3 (Version None)
Quarter: 2005Q4

REPORT INFORMATION
  Report Type: 
  Country: None (occurrence: None)
  Receive Date: 20051205
  Receipt Date: 20051201
  Transmission Date: 20060501
  Serious: Yes (Hospitalization)
  Sender: FDA-Public Use
  Company Number: FRASAN04095

PATIENT
  Age: 57 Year
  Sex: Female

DRUGS (3)
  1. AMOXICILLINE + AC CLAVULANIQUE [Suspect]
     Indication: TOOTH ABSCESS
     Dosage: 1G PER DAY
     Route: 048
     Dates: start: 20040507, end: 20050507
  2. DEPAMIDE [Concomitant]
  3. DEROXAT [Concomitant]

REACTIONS (4)
  - BLOOD PRESSURE DECREASED [None]
  - DISCOMFORT [None]
  - HYPERSENSITIVITY [None]
  - SHOCK [None]
